FAERS Safety Report 18001618 (Version 1)
Quarter: 2020Q3

REPORT INFORMATION
  Report Type: Spontaneous
  Country: US (occurrence: US)
  Receive Date: 20200709
  Receipt Date: 20200709
  Transmission Date: 20201103
  Serious: Yes (Hospitalization)
  Sender: FDA-Public Use
  Company Number: US-MYLANLABS-2020M1062454

PATIENT
  Age: 40 Year
  Sex: Male

DRUGS (4)
  1. PREDNISOLONE. [Suspect]
     Active Substance: PREDNISOLONE
     Indication: IMMUNOSUPPRESSANT DRUG THERAPY
     Dosage: 40 MILLIGRAM, QD INSTRUCTED TO COMPLETE A TAPER AT DISCHARGE 40MG DAILY FOR 32 DAYS?
     Route: 065
  2. PREDNISOLONE. [Suspect]
     Active Substance: PREDNISOLONE
     Dosage: 20MG DAILY FOR 3 DAYS
     Route: 065
  3. PREDNISOLONE. [Suspect]
     Active Substance: PREDNISOLONE
     Dosage: 10MG DAILY FOR 3 DAYS
     Route: 065
  4. PREDNISOLONE. [Suspect]
     Active Substance: PREDNISOLONE
     Dosage: 30MG DAILY FOR 3 DAYS
     Route: 065

REACTIONS (3)
  - Haemoptysis [Recovering/Resolving]
  - Hyperglycaemia [Recovering/Resolving]
  - Pulmonary tuberculosis [Recovered/Resolved]
